FAERS Safety Report 12617280 (Version 1)
Quarter: 2016Q3

REPORT INFORMATION
  Report Type: Spontaneous
  Country: US (occurrence: US)
  Receive Date: 20160803
  Receipt Date: 20160803
  Transmission Date: 20161109
  Serious: No
  Sender: FDA-Public Use
  Company Number: US-ASTRAZENECA-2016SE78511

PATIENT
  Sex: Female
  Weight: 84.8 kg

DRUGS (2)
  1. BRILINTA [Suspect]
     Active Substance: TICAGRELOR
     Indication: CATHETERISATION CARDIAC
     Route: 048
     Dates: start: 20160630
  2. ASPIRIN. [Concomitant]
     Active Substance: ASPIRIN
     Indication: CATHETERISATION CARDIAC
     Route: 048
     Dates: start: 20160630

REACTIONS (2)
  - Product use issue [Unknown]
  - Dyspnoea [Unknown]
